FAERS Safety Report 4730740-6 (Version None)
Quarter: 2005Q3

REPORT INFORMATION
  Report Type: 
  Country: None (occurrence: None)
  Receive Date: 20050725
  Receipt Date: 20050222
  Transmission Date: 20060218
  Serious: No
  Sender: FDA-Public Use
  Company Number: USA050291538

PATIENT
  Age: 4 Year
  Sex: Female
  Weight: 26 kg

DRUGS (2)
  1. STRATTERA [Suspect]
     Indication: ATTENTION DEFICIT/HYPERACTIVITY DISORDER
     Dosage: 25 MG/1 DAY
     Dates: start: 20040801
  2. ADDERALL 10 [Concomitant]

REACTIONS (2)
  - DRUG EFFECT DECREASED [None]
  - SLUGGISHNESS [None]
